FAERS Safety Report 10492726 (Version 1)
Quarter: 2014Q4

REPORT INFORMATION
  Report Type: Spontaneous
  Country: GB (occurrence: GB)
  Receive Date: 20141002
  Receipt Date: 20141002
  Transmission Date: 20150528
  Serious: Yes (Hospitalization, Other)
  Sender: FDA-Public Use
  Company Number: GB-WATSON-2014-20976

PATIENT
  Sex: Female

DRUGS (9)
  1. MABTHERA [Suspect]
     Active Substance: RITUXIMAB
     Indication: THROMBOTIC THROMBOCYTOPENIC PURPURA
     Dosage: 375 MG/M2, 1/WEEK;500 MG VIAL AND 100MG VIAL.
     Route: 065
     Dates: start: 20140826
  2. LOSARTAN (UNKNOWN) [Suspect]
     Active Substance: LOSARTAN
     Indication: HYPERTENSION
     Dosage: UNK UNK, DAILY
     Route: 048
  3. MABTHERA [Suspect]
     Active Substance: RITUXIMAB
     Dosage: 375 MG/M2, 1/WEEK;500 MG VIAL AND 100MG VIAL.
     Route: 065
     Dates: start: 20140818
  4. AMLODIPINE [Concomitant]
     Active Substance: AMLODIPINE BESYLATE
     Indication: HYPERTENSION
     Dosage: UNK
     Route: 065
  5. ASPIRIN. [Concomitant]
     Active Substance: ASPIRIN
     Indication: THROMBOTIC THROMBOCYTOPENIC PURPURA
     Dosage: 75 MG, DAILY
     Route: 048
  6. MABTHERA [Suspect]
     Active Substance: RITUXIMAB
     Dosage: 100 MG/M2, UNKNOWN
     Route: 065
     Dates: start: 2013
  7. METFORMIN [Concomitant]
     Active Substance: METFORMIN HYDROCHLORIDE
     Indication: TYPE 2 DIABETES MELLITUS
     Dosage: 500 MG, DAILY
     Route: 048
  8. MABTHERA [Suspect]
     Active Substance: RITUXIMAB
     Dosage: 375 MG/M2, 1/WEEK;500 MG VIAL AND 100MG VIAL.
     Route: 065
     Dates: start: 20140811
  9. MABTHERA [Suspect]
     Active Substance: RITUXIMAB
     Dosage: UNK
     Route: 065
     Dates: start: 2006

REACTIONS (7)
  - Swollen tongue [Recovering/Resolving]
  - ADAMTS13 activity decreased [Unknown]
  - Circulatory collapse [Unknown]
  - Thrombotic thrombocytopenic purpura [Unknown]
  - Pruritus [Unknown]
  - Left ventricular hypertrophy [Unknown]
  - Swelling face [Unknown]

NARRATIVE: CASE EVENT DATE: 2013
